FAERS Safety Report 7153633-6 (Version None)
Quarter: 2010Q4

REPORT INFORMATION
  Report Type: 
  Country: None (occurrence: None)
  Receive Date: 20101124
  Receipt Date: 20101117
  Transmission Date: 20110411
  Serious: Yes (Other)
  Sender: FDA-Public Use
  Company Number: 109024

PATIENT
  Age: 2 Year
  Sex: Female

DRUGS (1)
  1. ACETYLCYSTEINE [Suspect]

REACTIONS (1)
  - BLOOD ALKALINE PHOSPHATASE INCREASED [None]
